FAERS Safety Report 16159464 (Version 2)
Quarter: 2019Q2

REPORT INFORMATION
  Report Type: Spontaneous
  Country: FR (occurrence: FR)
  Receive Date: 20190404
  Receipt Date: 20190412
  Transmission Date: 20190711
  Serious: Yes (Death, Life-Threatening, Hospitalization, Other)
  Sender: FDA-Public Use
  Company Number: FR-PFIZER INC-2019146356

PATIENT
  Age: 56 Year
  Sex: Male

DRUGS (9)
  1. METHOTREXATE SODIUM. [Suspect]
     Active Substance: METHOTREXATE SODIUM
     Dosage: TREATMENT WAS ADMINISTERED A SECOND TIME
     Dates: start: 201009
  2. AZACITIDINE. [Suspect]
     Active Substance: AZACITIDINE
     Indication: ACUTE MYELOID LEUKAEMIA RECURRENT
     Dosage: UNK
     Dates: start: 201101
  3. ARACYTABIN [Suspect]
     Active Substance: CYTARABINE
     Indication: ACUTE MYELOID LEUKAEMIA RECURRENT
     Dosage: UNK
     Dates: start: 201101
  4. CYTARABINE. [Suspect]
     Active Substance: CYTARABINE
     Indication: ACUTE MYELOID LEUKAEMIA
     Dosage: UNK
     Dates: start: 200801, end: 200901
  5. CYTARABINE. [Suspect]
     Active Substance: CYTARABINE
     Dosage: TREATMENT WAS ADMINISTERED A SECOND TIME
     Dates: start: 201009
  6. IDARUBICIN HCL [Suspect]
     Active Substance: IDARUBICIN HYDROCHLORIDE
     Dosage: TREATMENT WAS ADMINISTERED A SECOND TIME
     Dates: start: 201009
  7. METHOTREXATE SODIUM. [Suspect]
     Active Substance: METHOTREXATE SODIUM
     Indication: ACUTE MYELOID LEUKAEMIA RECURRENT
     Dosage: 25 MG, 2X/WEEK (AFTER REMISSION)
     Dates: start: 200902, end: 200907
  8. HYDROXYCARBAMIDE [Suspect]
     Active Substance: HYDROXYUREA
     Indication: ACUTE MYELOID LEUKAEMIA RECURRENT
     Dosage: UNK
     Dates: start: 201101
  9. IDARUBICIN HCL [Suspect]
     Active Substance: IDARUBICIN HYDROCHLORIDE
     Indication: ACUTE MYELOID LEUKAEMIA
     Dosage: UNK
     Dates: start: 200801, end: 200901

REACTIONS (3)
  - Coma [Fatal]
  - Thrombocytopenia [Fatal]
  - Cerebral haemorrhage [Fatal]

NARRATIVE: CASE EVENT DATE: 201104
